FAERS Safety Report 6908596-2 (Version None)
Quarter: 2010Q3

REPORT INFORMATION
  Report Type: 
  Country: None (occurrence: None)
  Receive Date: 20100719
  Receipt Date: 20100129
  Transmission Date: 20110219
  Serious: Yes (Other)
  Sender: FDA-Public Use
  Company Number: US-WYE-H13307210

PATIENT
  Age: 70 Year
  Sex: Female
  Weight: 61.29 kg

DRUGS (10)
  1. ADVIL LIQUI-GELS [Suspect]
     Indication: ANALGESIC THERAPY
     Dosage: ONE TABLET PRN
     Dates: start: 20091101, end: 20100101
  2. RANITIDINE [Concomitant]
  3. CLARITIN [Concomitant]
  4. FEXOFENADINE HCL [Concomitant]
  5. SINGULAIR [Concomitant]
  6. TERAZOSIN HCL [Concomitant]
  7. CALCIUM [Concomitant]
  8. MULTI-VITAMINS [Concomitant]
  9. MAGNESIUM [Concomitant]
  10. COENZYME Q10 [Concomitant]

REACTIONS (4)
  - CONDITION AGGRAVATED [None]
  - FLUSHING [None]
  - HYPERTENSION [None]
  - PARAESTHESIA [None]
